FAERS Safety Report 23336467 (Version 1)
Quarter: 2023Q4

REPORT INFORMATION
  Report Type: Report from Study
  Country: BR (occurrence: BR)
  Receive Date: 20231225
  Receipt Date: 20231225
  Transmission Date: 20240110
  Serious: Yes (Other)
  Sender: FDA-Public Use
  Company Number: BR-ABBVIE-5553353

PATIENT
  Sex: Female
  Weight: 78 kg

DRUGS (3)
  1. RINVOQ [Suspect]
     Active Substance: UPADACITINIB
     Indication: Rheumatoid arthritis
     Dosage: 1 TABLET
     Route: 048
     Dates: start: 20211008
  2. ATENOLOL [Concomitant]
     Active Substance: ATENOLOL
     Indication: Product used for unknown indication
     Dosage: 1 TABLET
     Route: 048
  3. LOSARTAN [Concomitant]
     Active Substance: LOSARTAN
     Indication: Product used for unknown indication
     Dosage: 1 TABLET
     Route: 048

REACTIONS (22)
  - Peroneal nerve palsy [Unknown]
  - Paraesthesia [Recovering/Resolving]
  - Induration [Unknown]
  - Cystic lung disease [Unknown]
  - Groin pain [Recovering/Resolving]
  - Hepatitis C [Unknown]
  - Nausea [Recovered/Resolved]
  - Asthenia [Recovered/Resolved]
  - Diabetes mellitus [Recovered/Resolved]
  - Weight decreased [Recovered/Resolved]
  - Thyroid hormones decreased [Recovered/Resolved]
  - Hypoaesthesia [Recovering/Resolving]
  - Peripheral swelling [Unknown]
  - Feeling of despair [Unknown]
  - Lung disorder [Unknown]
  - Hypoaesthesia [Unknown]
  - Gait disturbance [Recovering/Resolving]
  - Decreased appetite [Recovered/Resolved]
  - Tonsillar hypertrophy [Recovered/Resolved]
  - Sleep disorder [Recovered/Resolved]
  - Nervousness [Unknown]
  - Hypophagia [Unknown]

NARRATIVE: CASE EVENT DATE: 20220101
